FAERS Safety Report 9420715 (Version 1)
Quarter: 2013Q3

REPORT INFORMATION
  Report Type: Spontaneous
  Country: JP (occurrence: JP)
  Receive Date: 20130725
  Receipt Date: 20130725
  Transmission Date: 20140515
  Serious: Yes (Death)
  Sender: FDA-Public Use
  Company Number: JP-JNJFOC-20130711894

PATIENT
  Sex: 0

DRUGS (3)
  1. INFLIXIMAB, RECOMBINANT [Suspect]
     Indication: RHEUMATOID ARTHRITIS
     Dosage: LOADING DOSE UPTO 10 MG/KG AT 0,2, 6, AND 8 WEEKS AFTER WEEK 6
     Route: 042
  2. PREDNISOLONE [Concomitant]
     Dosage: 7.5 (0.0-25.0) MG/DAY
     Route: 065
  3. METHOTREXATE [Concomitant]
     Dosage: 8 (0.0-12.0) MG/WEEK
     Route: 065

REACTIONS (1)
  - Interstitial lung disease [Fatal]
